FAERS Safety Report 19050670 (Version 1)
Quarter: 2021Q1

REPORT INFORMATION
  Report Type: Spontaneous
  Country: US (occurrence: US)
  Receive Date: 20210323
  Receipt Date: 20210323
  Transmission Date: 20210420
  Serious: Yes (Hospitalization, Disabling)
  Sender: FDA-Public Use
  Company Number: None

PATIENT
  Age: 41 Year
  Sex: Female
  Weight: 86.85 kg

DRUGS (24)
  1. GADOLINIUM?BASED CONTRAST AGENT [Suspect]
     Active Substance: GADOLINIUM
     Indication: SCAN WITH CONTRAST
     Route: 042
     Dates: start: 20210215, end: 20210215
  2. ESTRADIOL. [Concomitant]
     Active Substance: ESTRADIOL
  3. METHYLFOLATE [Concomitant]
     Active Substance: LEVOMEFOLATE CALCIUM
  4. MAGNESIUM CITRATE. [Concomitant]
     Active Substance: MAGNESIUM CITRATE
  5. PSYLLIUM FIBER [Concomitant]
  6. LORATADINE. [Concomitant]
     Active Substance: LORATADINE
  7. AMITRIPTYLINE [Concomitant]
     Active Substance: AMITRIPTYLINE
  8. PROGESTERONE. [Concomitant]
     Active Substance: PROGESTERONE
  9. QUERCETIN [Concomitant]
     Active Substance: QUERCETIN
  10. XOLAIR [Concomitant]
     Active Substance: OMALIZUMAB
  11. RITALIN [Concomitant]
     Active Substance: METHYLPHENIDATE HYDROCHLORIDE
  12. FLORINEF ACETATE [Concomitant]
     Active Substance: FLUDROCORTISONE ACETATE
  13. HYDROCORTISONE CREAM [Concomitant]
     Active Substance: HYDROCORTISONE
  14. BUDESONIDE. [Concomitant]
     Active Substance: BUDESONIDE
  15. COD LIVER OIL [Concomitant]
     Active Substance: COD LIVER OIL
  16. PRIMROSE OIL [Concomitant]
  17. NORTRIPTYLINE [Concomitant]
     Active Substance: NORTRIPTYLINE
  18. BETAMETHAZONE CREAM [Concomitant]
  19. BENADRYL [Concomitant]
     Active Substance: DIPHENHYDRAMINE HYDROCHLORIDE
  20. VITAMIN C [Concomitant]
     Active Substance: ASCORBIC ACID
  21. SINGULAIR [Concomitant]
     Active Substance: MONTELUKAST SODIUM
  22. DHEA [Concomitant]
     Active Substance: PRASTERONE
  23. VITAMIN D [Concomitant]
     Active Substance: VITAMIN D NOS
  24. GLUTAMINE [Concomitant]
     Active Substance: GLUTAMINE

REACTIONS (18)
  - Dizziness [None]
  - Contrast media reaction [None]
  - Anaphylactic reaction [None]
  - Dysstasia [None]
  - Rash pruritic [None]
  - Swelling [None]
  - Myelopathy [None]
  - Paraesthesia [None]
  - Fall [None]
  - Erythema [None]
  - Pharyngeal swelling [None]
  - Multiple allergies [None]
  - Tremor [None]
  - Muscle strength abnormal [None]
  - Gait inability [None]
  - Arthralgia [None]
  - Facial paralysis [None]
  - Skin exfoliation [None]

NARRATIVE: CASE EVENT DATE: 20210215
